FAERS Safety Report 5777862-9 (Version None)
Quarter: 2008Q2

REPORT INFORMATION
  Report Type: 
  Country: None (occurrence: None)
  Receive Date: 20080618
  Receipt Date: 20080611
  Transmission Date: 20081010
  Serious: Yes (Death)
  Sender: FDA-Public Use
  Company Number: CA-ALLERGAN-0713146US

PATIENT
  Sex: Male

DRUGS (6)
  1. LUMIGAN [Suspect]
     Indication: GLAUCOMA
     Dosage: 1 GTT, UNK
  2. PLAVIX [Concomitant]
     Dosage: 75 MG, QD
  3. CENTROID [Concomitant]
     Dosage: 0.5 MG, QD
  4. LIPITOR [Concomitant]
     Dosage: 10 MG, QD
  5. COUMADIN [Concomitant]
     Dosage: 1.5 TO 2.0 MG, QD
  6. AMIODARONE HCL [Concomitant]
     Dosage: 200 MG, QD

REACTIONS (1)
  - DEATH [None]
